FAERS Safety Report 10236337 (Version 2)
Quarter: 2014Q2

REPORT INFORMATION
  Report Type: Spontaneous
  Country: US (occurrence: US)
  Receive Date: 20140613
  Receipt Date: 20140613
  Transmission Date: 20141212
  Serious: No
  Sender: FDA-Public Use
  Company Number: US-GLAXOSMITHKLINE-A0867914A

PATIENT
  Sex: Female

DRUGS (3)
  1. TREXIMET [Suspect]
     Indication: MIGRAINE
     Dosage: 1TAB AS DIRECTED
     Route: 048
     Dates: start: 201004
  2. FLONASE [Suspect]
     Indication: RESPIRATORY DISORDER
     Route: 045
  3. COUMADIN [Concomitant]

REACTIONS (6)
  - Fatigue [Unknown]
  - Headache [Unknown]
  - Sinusitis [Unknown]
  - Paranasal sinus discomfort [Unknown]
  - Sinus headache [Unknown]
  - Malaise [Unknown]
